FAERS Safety Report 17298488 (Version 8)
Quarter: 2020Q2

REPORT INFORMATION
  Report Type: Spontaneous
  Country: US (occurrence: US)
  Receive Date: 20200121
  Receipt Date: 20200602
  Transmission Date: 20200713
  Serious: No
  Sender: FDA-Public Use
  Company Number: US-ACTELION-A-NJ2020-200727

PATIENT
  Sex: Male
  Weight: 130.16 kg

DRUGS (6)
  1. TADALAFIL. [Concomitant]
     Active Substance: TADALAFIL
  2. OPSUMIT [Suspect]
     Active Substance: MACITENTAN
     Indication: PULMONARY ARTERIAL HYPERTENSION
     Dosage: 10 MG, QD
     Route: 048
  3. TYVASO [Suspect]
     Active Substance: TREPROSTINIL
     Indication: PRODUCT USED FOR UNKNOWN INDICATION
     Dosage: 9 BREATHS
     Route: 065
  4. ADCIRCA [Concomitant]
     Active Substance: TADALAFIL
  5. TYVASO [Suspect]
     Active Substance: TREPROSTINIL
     Dosage: UNK
     Route: 065
  6. ELIQUIS [Concomitant]
     Active Substance: APIXABAN

REACTIONS (13)
  - Cough [Unknown]
  - Respiratory tract congestion [Unknown]
  - Unevaluable event [Unknown]
  - Dizziness [Unknown]
  - Malaise [Unknown]
  - Feeling abnormal [Unknown]
  - Headache [Not Recovered/Not Resolved]
  - Oropharyngeal discomfort [Unknown]
  - Skin papilloma [Unknown]
  - Helicobacter infection [Unknown]
  - Asthenia [Unknown]
  - Sluggishness [Not Recovered/Not Resolved]
  - Fatigue [Unknown]
